FAERS Safety Report 24114286 (Version 4)
Quarter: 2025Q1

REPORT INFORMATION
  Report Type: Report from Study
  Country: US (occurrence: US)
  Receive Date: 20240720
  Receipt Date: 20250228
  Transmission Date: 20250409
  Serious: Yes (Hospitalization, Other)
  Sender: TAKEDA
  Company Number: US-TAKEDA-2024TUS071327

PATIENT
  Sex: Female

DRUGS (2)
  1. ICATIBANT [Suspect]
     Active Substance: ICATIBANT ACETATE
     Indication: Immune system disorder
  2. ICATIBANT [Suspect]
     Active Substance: ICATIBANT ACETATE

REACTIONS (11)
  - Impaired gastric emptying [Unknown]
  - Device malfunction [Unknown]
  - Thrombosis [Unknown]
  - Intestinal mass [Unknown]
  - Blood pressure increased [Unknown]
  - Syncope [Unknown]
  - Dizziness [Unknown]
  - Haematoma [Unknown]
  - Meniscus injury [Unknown]
  - Tendonitis [Unknown]
  - Product use issue [Unknown]
